FAERS Safety Report 14333748 (Version 1)
Quarter: 2017Q4

REPORT INFORMATION
  Report Type: Spontaneous
  Country: DE (occurrence: DE)
  Receive Date: 20171228
  Receipt Date: 20171228
  Transmission Date: 20180321
  Serious: Yes (Hospitalization, Disabling, Other)
  Sender: FDA-Public Use
  Company Number: DE-AMGEN-DEUSP2017189941

PATIENT
  Age: 60 Year
  Sex: Female
  Weight: 58 kg

DRUGS (1)
  1. PROLIA [Suspect]
     Active Substance: DENOSUMAB
     Indication: OSTEOPOROSIS
     Dosage: 60 MG, UNK
     Route: 065
     Dates: start: 201401, end: 201607

REACTIONS (1)
  - Thoracic vertebral fracture [Unknown]

NARRATIVE: CASE EVENT DATE: 20170808
